FAERS Safety Report 4611470-8 (Version None)
Quarter: 2005Q2

REPORT INFORMATION
  Report Type: 
  Country: None (occurrence: None)
  Receive Date: 20050311
  Receipt Date: 20041112
  Transmission Date: 20051028
  Serious: No
  Sender: FDA-Public Use
  Company Number: 2004-BP-11824BP

PATIENT
  Age: 59 Year
  Sex: Female

DRUGS (7)
  1. SPIRIVA [Suspect]
     Indication: ASTHMA
     Dosage: 18 MCG (18 MCG, CAPSULE QD), IH
     Route: 055
     Dates: start: 20040901, end: 20041101
  2. SPIRIVA [Suspect]
     Indication: CHRONIC OBSTRUCTIVE PULMONARY DISEASE
     Dosage: 18 MCG (18 MCG, CAPSULE QD), IH
     Route: 055
     Dates: start: 20040901, end: 20041101
  3. ADVAIR DISKUS 100/50 [Concomitant]
  4. ZOLOFT [Concomitant]
  5. NASONEX [Concomitant]
  6. ALBUTEROL [Concomitant]
  7. ASPIRIN [Concomitant]

REACTIONS (4)
  - ABDOMINAL PAIN [None]
  - DIZZINESS [None]
  - FREQUENT BOWEL MOVEMENTS [None]
  - MUSCLE SPASMS [None]
